FAERS Safety Report 6045677-2 (Version None)
Quarter: 2009Q1

REPORT INFORMATION
  Report Type: 
  Country: None (occurrence: None)
  Receive Date: 20090121
  Receipt Date: 20090114
  Transmission Date: 20090719
  Serious: Yes (Hospitalization)
  Sender: FDA-Public Use
  Company Number: US-SANOFI-SYNTHELABO-A03200900187

PATIENT
  Sex: Male

DRUGS (4)
  1. METOPROLOL TARTRATE [Concomitant]
     Indication: ARRHYTHMIA
     Route: 065
     Dates: start: 20081101
  2. ASPIRIN [Concomitant]
     Indication: DRUG USE FOR UNKNOWN INDICATION
     Route: 065
     Dates: start: 19990101
  3. ZOCOR [Concomitant]
     Indication: DRUG USE FOR UNKNOWN INDICATION
     Route: 065
     Dates: start: 20000101
  4. PLAVIX [Suspect]
     Indication: TRANSIENT ISCHAEMIC ATTACK
     Route: 048

REACTIONS (6)
  - ARRHYTHMIA [None]
  - ASTHENIA [None]
  - CONTUSION [None]
  - CORONARY ARTERY OCCLUSION [None]
  - FATIGUE [None]
  - HAEMORRHAGIC DIATHESIS [None]
